FAERS Safety Report 5853240-9 (Version None)
Quarter: 2008Q3

REPORT INFORMATION
  Report Type: 
  Country: None (occurrence: None)
  Receive Date: 20080820
  Receipt Date: 20080806
  Transmission Date: 20090109
  Serious: Yes (Hospitalization, Other)
  Sender: FDA-Public Use
  Company Number: 2008EN000112

PATIENT
  Sex: Male

DRUGS (7)
  1. ONCASPAR [Suspect]
     Indication: ACUTE LYMPHOCYTIC LEUKAEMIA
     Dosage: IV; IV; 465 IU IV
     Route: 042
     Dates: start: 20080212, end: 20080212
  2. ONCASPAR [Suspect]
     Indication: ACUTE LYMPHOCYTIC LEUKAEMIA
     Dosage: IV; IV; 465 IU IV
     Route: 042
     Dates: start: 20080428, end: 20080428
  3. ONCASPAR [Suspect]
     Indication: ACUTE LYMPHOCYTIC LEUKAEMIA
     Dosage: IV; IV; 465 IU IV
     Route: 042
     Dates: start: 20080512, end: 20080512
  4. BENADRYL [Concomitant]
  5. WARNER [Concomitant]
  6. TYLENOL (CAPLET) [Concomitant]
  7. HYDROCORTISONE [Concomitant]

REACTIONS (10)
  - ABDOMINAL PAIN [None]
  - ANAPHYLACTIC REACTION [None]
  - BLINDNESS TRANSIENT [None]
  - FEELING COLD [None]
  - HYPERHIDROSIS [None]
  - HYPOTENSION [None]
  - HYPOXIA [None]
  - PRURITUS [None]
  - UNRESPONSIVE TO STIMULI [None]
  - VOMITING [None]
